FAERS Safety Report 12762814 (Version 1)
Quarter: 2016Q3

REPORT INFORMATION
  Report Type: Spontaneous
  Country: US (occurrence: US)
  Receive Date: 20160920
  Receipt Date: 20160920
  Transmission Date: 20161109
  Serious: Yes (Death)
  Sender: FDA-Public Use
  Company Number: US-PFIZER INC-2016431256

PATIENT
  Age: 84 Year
  Sex: Female

DRUGS (6)
  1. NOREPINEPHRINE BITARTRATE. [Suspect]
     Active Substance: NOREPINEPHRINE BITARTRATE
     Indication: HAEMODYNAMIC INSTABILITY
     Dosage: UNK, (MAXIMAL DOSE)
  2. PHENYLEPHRINE HCL [Suspect]
     Active Substance: PHENYLEPHRINE HYDROCHLORIDE
     Indication: SHOCK
  3. MILRINONE [Suspect]
     Active Substance: MILRINONE
     Indication: SHOCK
  4. PHENYLEPHRINE HCL [Suspect]
     Active Substance: PHENYLEPHRINE HYDROCHLORIDE
     Indication: HAEMODYNAMIC INSTABILITY
     Dosage: UNK, (MAXIMAL DOSE)
  5. MILRINONE [Suspect]
     Active Substance: MILRINONE
     Indication: HAEMODYNAMIC INSTABILITY
     Dosage: UNK, (MAXIMAL DOSES)
  6. NOREPINEPHRINE BITARTRATE. [Suspect]
     Active Substance: NOREPINEPHRINE BITARTRATE
     Indication: SHOCK

REACTIONS (2)
  - Shock [Fatal]
  - Condition aggravated [Fatal]
